FAERS Safety Report 12652229 (Version 1)
Quarter: 2016Q3

REPORT INFORMATION
  Report Type: Spontaneous
  Country: TR (occurrence: TR)
  Receive Date: 20160815
  Receipt Date: 20160815
  Transmission Date: 20161109
  Serious: Yes (Other)
  Sender: FDA-Public Use
  Company Number: TR-GUERBET LLC-1056317

PATIENT
  Age: 31 Year
  Sex: Male

DRUGS (1)
  1. OPTIRAY [Suspect]
     Active Substance: IOVERSOL
     Indication: COMPUTERISED TOMOGRAM
     Dates: start: 20160725, end: 20160725

REACTIONS (5)
  - Dizziness [Unknown]
  - Burning sensation [Unknown]
  - Dyspnoea [Unknown]
  - Lethargy [Unknown]
  - Gait disturbance [Unknown]

NARRATIVE: CASE EVENT DATE: 20160725
